FAERS Safety Report 12780609 (Version 1)
Quarter: 2016Q3

REPORT INFORMATION
  Report Type: Spontaneous
  Country: JP (occurrence: JP)
  Receive Date: 20160926
  Receipt Date: 20160926
  Transmission Date: 20161109
  Serious: Yes (Hospitalization)
  Sender: FDA-Public Use
  Company Number: JP-NOVAST LABORATORIES, LTD-JP-2016NOV000036

PATIENT
  Age: 28 Year
  Sex: Female

DRUGS (4)
  1. METHYLPREDNISOLONE. [Concomitant]
     Active Substance: METHYLPREDNISOLONE
     Indication: IMMUNOSUPPRESSION
     Dosage: UNK
  2. MYCOPHENOLATE MOFETIL. [Concomitant]
     Active Substance: MYCOPHENOLATE MOFETIL
     Indication: IMMUNOSUPPRESSION
     Dosage: UNK
  3. TACROLIMUS. [Concomitant]
     Active Substance: TACROLIMUS
     Indication: IMMUNOSUPPRESSION
     Dosage: UNK
  4. NORGESTREL/ETHINYL ESTRADIOL [Suspect]
     Active Substance: ETHINYL ESTRADIOL\NORGESTREL
     Indication: VAGINAL HAEMORRHAGE
     Dosage: UNK
     Route: 048

REACTIONS (14)
  - Anuria [Unknown]
  - Cytomegalovirus infection [Unknown]
  - Arterial occlusive disease [Unknown]
  - Acute allograft nephropathy [Unknown]
  - Pneumonia bacterial [Unknown]
  - Thrombotic microangiopathy [Unknown]
  - Capillaritis [Unknown]
  - Decreased appetite [Unknown]
  - Generalised oedema [Unknown]
  - Renal tubular necrosis [Unknown]
  - Fatigue [Unknown]
  - Urine output decreased [Unknown]
  - Haemorrhagic diathesis [Unknown]
  - Glomerulonephritis [Unknown]
